FAERS Safety Report 9752267 (Version 1)
Quarter: 2013Q4

REPORT INFORMATION
  Report Type: Spontaneous
  Country: US (occurrence: US)
  Receive Date: 20131213
  Receipt Date: 20131213
  Transmission Date: 20140711
  Serious: No
  Sender: FDA-Public Use
  Company Number: US-MYLANLABS-2013S1019939

PATIENT
  Sex: Male
  Weight: 98.88 kg

DRUGS (7)
  1. CLOPIDOGREL TABLETS USP [Suspect]
     Indication: MYOCARDIAL INFARCTION
     Route: 048
     Dates: start: 2012
  2. DIOVAN [Concomitant]
     Indication: BLOOD PRESSURE INCREASED
     Route: 048
     Dates: start: 200611
  3. METOPROLOL [Concomitant]
     Indication: BLOOD PRESSURE INCREASED
     Route: 048
     Dates: start: 200611
  4. LIPITOR [Concomitant]
     Indication: BLOOD CHOLESTEROL INCREASED
     Route: 048
     Dates: start: 200611
  5. ISOSORBIDE [Concomitant]
     Indication: ANGINA PECTORIS
     Route: 048
     Dates: start: 200611
  6. ZANTAC [Concomitant]
     Indication: DYSPEPSIA
     Route: 048
     Dates: start: 200611
  7. NORVASC [Concomitant]
     Indication: BLOOD PRESSURE INCREASED
     Route: 048
     Dates: start: 200611

REACTIONS (1)
  - Skin lesion [Not Recovered/Not Resolved]
